FAERS Safety Report 10278541 (Version 2)
Quarter: 2014Q3

REPORT INFORMATION
  Report Type: Report from Study
  Country: CA (occurrence: CA)
  Receive Date: 20140704
  Receipt Date: 20140704
  Transmission Date: 20150326
  Serious: Yes (Hospitalization)
  Sender: FDA-Public Use
  Company Number: CA-JNJFOC-20140518459

PATIENT
  Age: 30 Year
  Sex: Female
  Weight: 50 kg

DRUGS (1)
  1. REMICADE [Suspect]
     Active Substance: INFLIXIMAB
     Indication: CROHN^S DISEASE
     Route: 042
     Dates: start: 20140203, end: 20140514

REACTIONS (4)
  - Intestinal resection [Recovering/Resolving]
  - Oophorectomy [Recovering/Resolving]
  - Hysterectomy [Recovering/Resolving]
  - Salpingectomy [Recovering/Resolving]

NARRATIVE: CASE EVENT DATE: 20140604
